FAERS Safety Report 10790880 (Version 1)
Quarter: 2015Q1

REPORT INFORMATION
  Report Type: Spontaneous
  Country: US (occurrence: US)
  Receive Date: 20150212
  Receipt Date: 20150212
  Transmission Date: 20150721
  Serious: No
  Sender: FDA-Public Use
  Company Number: US-TARO-2014TAR00361

PATIENT
  Sex: Female
  Weight: 58.96 kg

DRUGS (3)
  1. FLUOCINONIDE TOPICAL SOLUTION USP 0.05% [Suspect]
     Active Substance: FLUOCINONIDE
     Indication: DRY SKIN
     Dosage: UNK UNK, 2X/DAY
     Route: 061
     Dates: start: 201401, end: 201407
  2. AMBIEN [Concomitant]
     Active Substance: ZOLPIDEM TARTRATE
  3. LEVOTHYROXINE [Concomitant]
     Active Substance: LEVOTHYROXINE

REACTIONS (5)
  - Application site pain [Recovering/Resolving]
  - Off label use [Recovered/Resolved]
  - Application site alopecia [Recovering/Resolving]
  - Hair growth abnormal [Recovered/Resolved]
  - Application site erythema [Recovering/Resolving]

NARRATIVE: CASE EVENT DATE: 2014
